FAERS Safety Report 6035948-8 (Version None)
Quarter: 2009Q1

REPORT INFORMATION
  Report Type: 
  Country: None (occurrence: None)
  Receive Date: 20090113
  Receipt Date: 20090106
  Transmission Date: 20090719
  Serious: Yes (Death)
  Sender: FDA-Public Use
  Company Number: TH-ROCHE-606335

PATIENT
  Sex: Male
  Weight: 71 kg

DRUGS (18)
  1. METHOXY POLYETHYLENE GLYCOL-EPOETIN BETA [Suspect]
     Dosage: FORM: VIAL
     Route: 058
     Dates: start: 20081222
  2. METHOXY POLYETHYLENE GLYCOL-EPOETIN BETA [Suspect]
     Route: 058
  3. ALLOPURINOL [Concomitant]
     Dates: start: 19980101
  4. SODIUM BICARBONATE [Concomitant]
     Dates: start: 20080714
  5. Z-BEC [Concomitant]
     Dates: start: 20000801
  6. FOLIC ACID [Concomitant]
     Dates: start: 20000301
  7. SENOKOT [Concomitant]
     Dates: start: 20070327
  8. ANTACID TAB [Concomitant]
     Dosage: DRUG NAME: ANTACID GEL
     Dates: start: 20071207
  9. NA HEPARIN [Concomitant]
     Dosage: DRUG NAME: HEPARIN NA
     Dates: start: 20070330
  10. OMEPRAZOLE [Concomitant]
     Dates: start: 20070912
  11. ASPIRIN [Concomitant]
     Dates: start: 20071105
  12. FEXOFENADINE HCL [Concomitant]
     Dates: start: 20080102
  13. DOMPERIDONE [Concomitant]
     Dates: start: 20080123
  14. ALPRAZOLAM [Concomitant]
     Dates: start: 20080610
  15. AMIODARONE HCL [Concomitant]
     Dosage: DRUG NAME: AMIDARONE HCL
     Dates: start: 20080504
  16. UBIDECARENONE [Concomitant]
     Dates: start: 20080503
  17. DIGOXIN [Concomitant]
     Dates: start: 20080613
  18. TRIMETAZIDINE DIHYDROCHLORIDE [Concomitant]
     Dosage: DRUG NAME: TRIMETAZIDINE DIHCL
     Dates: start: 20080303

REACTIONS (1)
  - CARDIAC ARREST [None]
